FAERS Safety Report 13400995 (Version 4)
Quarter: 2017Q2

REPORT INFORMATION
  Report Type: Spontaneous
  Country: JP (occurrence: JP)
  Receive Date: 20170404
  Receipt Date: 20170426
  Transmission Date: 20170830
  Serious: Yes (Disabling)
  Sender: FDA-Public Use
  Company Number: JP-PFIZER INC-2017144416

PATIENT
  Age: 78 Year
  Sex: Male

DRUGS (8)
  1. CLOPIDOGREL SULFATE [Suspect]
     Active Substance: CLOPIDOGREL BISULFATE
     Indication: CEREBRAL INFARCTION
     Dosage: 75 MG, DAILY
     Route: 048
     Dates: start: 201305
  2. ETHYL ICOSAPENTATE [Suspect]
     Active Substance: ICOSAPENT ETHYL
     Indication: CEREBRAL INFARCTION
     Dosage: 1800 MG, DAILY
     Route: 048
     Dates: start: 201305
  3. GRTPA [Suspect]
     Active Substance: ALTEPLASE
     Dosage: UNK
     Route: 041
     Dates: start: 2013
  4. ROSUVASTATIN CALCIUM. [Suspect]
     Active Substance: ROSUVASTATIN CALCIUM
     Indication: CEREBRAL INFARCTION
     Dosage: 2.5 MG, DAILY
     Route: 048
     Dates: start: 201305
  5. CILOSTAZOL. [Suspect]
     Active Substance: CILOSTAZOL
     Indication: CEREBRAL INFARCTION
     Dosage: 200 MG, DAILY
     Dates: start: 201305
  6. NOVASTAN [Suspect]
     Active Substance: ARGATROBAN
     Dosage: 60 MG, DAILY
     Dates: start: 2013
  7. NOVASTAN [Suspect]
     Active Substance: ARGATROBAN
     Indication: CEREBRAL INFARCTION
     Dosage: 60 MG, DAILY
     Dates: start: 201305
  8. GRTPA [Suspect]
     Active Substance: ALTEPLASE
     Indication: CEREBRAL INFARCTION
     Dosage: UNK
     Route: 041
     Dates: start: 201305

REACTIONS (1)
  - Cerebral infarction [Recovered/Resolved with Sequelae]

NARRATIVE: CASE EVENT DATE: 201305
